FAERS Safety Report 15223534 (Version 4)
Quarter: 2019Q1

REPORT INFORMATION
  Report Type: Report from Study
  Country: IT (occurrence: IT)
  Receive Date: 20180731
  Receipt Date: 20190205
  Transmission Date: 20190417
  Serious: Yes (Hospitalization)
  Sender: FDA-Public Use
  Company Number: IT-MYLANLABS-2018M1056396

PATIENT
  Age: 63 Year
  Sex: Female

DRUGS (4)
  1. SALBUTAMOL [Suspect]
     Active Substance: ALBUTEROL
     Indication: ASTHMA
     Dosage: UNK
     Route: 065
     Dates: start: 20180409, end: 20180410
  2. AMBROXOL [Suspect]
     Active Substance: AMBROXOL
     Indication: AIRWAY SECRETION CLEARANCE THERAPY
     Dosage: UNK
     Route: 065
     Dates: start: 20180409, end: 20180410
  3. MUCOSOLVAN [Suspect]
     Active Substance: AMBROXOL HYDROCHLORIDE
     Indication: PRODUCT USED FOR UNKNOWN INDICATION
     Dosage: UNK
     Route: 065
  4. BUDESONIDE. [Suspect]
     Active Substance: BUDESONIDE
     Indication: ASTHMA
     Dosage: UNK
     Route: 055
     Dates: start: 20180409, end: 20180410

REACTIONS (1)
  - Rash generalised [Recovered/Resolved]

NARRATIVE: CASE EVENT DATE: 20180410
